FAERS Safety Report 8139272-9 (Version None)
Quarter: 2012Q1

REPORT INFORMATION
  Report Type: 
  Country: None (occurrence: None)
  Receive Date: 20120215
  Receipt Date: 20120206
  Transmission Date: 20120608
  Serious: No
  Sender: FDA-Public Use
  Company Number: US-PFIZER INC-2011317456

PATIENT
  Sex: Female
  Weight: 54.4 kg

DRUGS (5)
  1. IBUPROFEN (ADVIL) [Suspect]
     Indication: HEADACHE
     Dosage: 200 MG, 1X/DAY
     Route: 048
     Dates: start: 20080101, end: 20111001
  2. IBUPROFEN (ADVIL) [Suspect]
  3. IBUPROFEN (ADVIL) [Suspect]
  4. IBUPROFEN (ADVIL) [Suspect]
  5. IBUPROFEN (ADVIL) [Suspect]
     Indication: DYSMENORRHOEA
     Dosage: 200 MG, 1X/DAY
     Route: 048
     Dates: start: 20111228, end: 20111228

REACTIONS (2)
  - SWELLING FACE [None]
  - HYPERSENSITIVITY [None]
